FAERS Safety Report 11285629 (Version 1)
Quarter: 2015Q3

REPORT INFORMATION
  Report Type: Spontaneous
  Country: US (occurrence: US)
  Receive Date: 20150720
  Receipt Date: 20150720
  Transmission Date: 20151125
  Serious: No
  Sender: FDA-Public Use
  Company Number: US-009507513-1507USA008408

PATIENT
  Age: 23 Year
  Sex: Female
  Weight: 79.82 kg

DRUGS (1)
  1. NEXPLANON [Suspect]
     Active Substance: ETONOGESTREL
     Indication: CONTRACEPTION
     Dosage: UNK, EVERY 3 YEARS IN THE LEFT ARM
     Route: 059
     Dates: start: 20131202

REACTIONS (2)
  - Menorrhagia [Not Recovered/Not Resolved]
  - Implant site pain [Unknown]

NARRATIVE: CASE EVENT DATE: 20150625
